FAERS Safety Report 8968808 (Version 3)
Quarter: 2014Q2

REPORT INFORMATION
  Report Type: Report from Study
  Country: US (occurrence: US)
  Receive Date: 20121217
  Receipt Date: 20140512
  Transmission Date: 20141212
  Serious: Yes (Hospitalization, Other)
  Sender: FDA-Public Use
  Company Number: US-ACTELION-A-US2012-67094

PATIENT
  Age: 74 Year
  Sex: Male

DRUGS (6)
  1. TRACLEER [Suspect]
     Indication: PULMONARY ARTERIAL HYPERTENSION
     Dosage: 125 MG, BID
     Route: 048
     Dates: start: 201206
  2. TRACLEER [Suspect]
     Dosage: UNK
     Route: 048
     Dates: start: 201205, end: 201206
  3. PLAVIX [Concomitant]
  4. ASPIRIN [Concomitant]
  5. NITROGLYCERIN [Concomitant]
  6. OXYGEN [Concomitant]

REACTIONS (10)
  - Haemorrhage [Recovering/Resolving]
  - Anaemia [Recovering/Resolving]
  - Haemoglobin abnormal [Recovering/Resolving]
  - Haemoglobin decreased [Recovering/Resolving]
  - Transfusion [Recovering/Resolving]
  - Influenza [Recovering/Resolving]
  - Fatigue [Recovering/Resolving]
  - Synovial cyst [Unknown]
  - Dizziness [Unknown]
  - Peripheral swelling [Unknown]
